FAERS Safety Report 6516821-5 (Version None)
Quarter: 2009Q4

REPORT INFORMATION
  Report Type: 
  Country: None (occurrence: None)
  Receive Date: 20091223
  Receipt Date: 20091211
  Transmission Date: 20100525
  Serious: Yes (Other)
  Sender: FDA-Public Use
  Company Number: PHHY2009JP52163

PATIENT
  Age: 66 Year
  Sex: Male

DRUGS (2)
  1. TEGRETOL [Suspect]
     Indication: EPILEPSY
     Dosage: UNK
     Route: 048
     Dates: start: 19790518
  2. TEGRETOL [Suspect]
     Dosage: 400 MG DAILY
     Route: 048
     Dates: start: 19990629, end: 20081217

REACTIONS (15)
  - ALBINISM [None]
  - BIOPSY SKIN ABNORMAL [None]
  - COPROPORPHYRINOGEN INCREASED [None]
  - EPILEPSY [None]
  - ERYTHEMA [None]
  - ESCHAR [None]
  - HEPATITIS C [None]
  - HIRSUTISM [None]
  - MENTAL RETARDATION [None]
  - MULTIPLE SCLEROSIS [None]
  - PIGMENTATION DISORDER [None]
  - PORPHYRIA NON-ACUTE [None]
  - PORPHYRINS URINE INCREASED [None]
  - SCAR [None]
  - ULCER [None]
